FAERS Safety Report 22219272 (Version 2)
Quarter: 2023Q2

REPORT INFORMATION
  Report Type: Report from Study
  Country: US (occurrence: US)
  Receive Date: 20230417
  Receipt Date: 20230509
  Transmission Date: 20230721
  Serious: Yes (Other)
  Sender: FDA-Public Use
  Company Number: US-ABBVIE-4315177

PATIENT
  Age: 50 Year
  Sex: Female

DRUGS (1)
  1. HUMIRA [Suspect]
     Active Substance: ADALIMUMAB
     Indication: Psoriasis
     Dosage: CITRATE FREE
     Route: 058
     Dates: start: 20050125

REACTIONS (16)
  - Blindness [Not Recovered/Not Resolved]
  - Atrial fibrillation [Recovering/Resolving]
  - Hypersensitivity [Recovering/Resolving]
  - Cerebrovascular accident [Not Recovered/Not Resolved]
  - Eye disorder [Not Recovered/Not Resolved]
  - Confusional state [Unknown]
  - Myocardial infarction [Recovering/Resolving]
  - Atrial fibrillation [Unknown]
  - Rhinorrhoea [Unknown]
  - Multiple allergies [Unknown]
  - Headache [Unknown]
  - Erythema [Not Recovered/Not Resolved]
  - Visual impairment [Not Recovered/Not Resolved]
  - Cerebrovascular accident [Recovering/Resolving]
  - Pruritus [Not Recovered/Not Resolved]
  - Swelling [Not Recovered/Not Resolved]

NARRATIVE: CASE EVENT DATE: 20221101
